FAERS Safety Report 8191956-2 (Version None)
Quarter: 2012Q1

REPORT INFORMATION
  Report Type: 
  Country: None (occurrence: None)
  Receive Date: 20120307
  Receipt Date: 20120302
  Transmission Date: 20120608
  Serious: Yes (Other)
  Sender: FDA-Public Use
  Company Number: PHHY2012IE018467

PATIENT
  Sex: Female

DRUGS (1)
  1. ZOLEDRONOC ACID [Suspect]
     Dosage: UNK UKN, UNK
     Route: 042
     Dates: start: 20120204

REACTIONS (5)
  - NAUSEA [None]
  - C-REACTIVE PROTEIN INCREASED [None]
  - VOMITING [None]
  - GASTRITIS EROSIVE [None]
  - RED BLOOD CELL SEDIMENTATION RATE INCREASED [None]
